FAERS Safety Report 24777787 (Version 8)
Quarter: 2025Q3

REPORT INFORMATION
  Report Type: Report from Study
  Country: IN (occurrence: IN)
  Receive Date: 20241226
  Receipt Date: 20250826
  Transmission Date: 20251020
  Serious: Yes (Hospitalization, Other)
  Sender: TAKEDA
  Company Number: IN-TAKEDA-2023TUS014828

PATIENT
  Sex: Female

DRUGS (2)
  1. VEDOLIZUMAB [Suspect]
     Active Substance: VEDOLIZUMAB
     Indication: Colitis ulcerative
  2. VEDOLIZUMAB [Suspect]
     Active Substance: VEDOLIZUMAB

REACTIONS (9)
  - Pancytopenia [Unknown]
  - Large intestine infection [Unknown]
  - Haemoglobin decreased [Unknown]
  - Dyspnoea [Unknown]
  - Nasopharyngitis [Unknown]
  - Gastrointestinal pain [Unknown]
  - Mental disorder [Unknown]
  - Malaise [Unknown]
  - Inappropriate schedule of product administration [Unknown]
